FAERS Safety Report 7515000-2 (Version None)
Quarter: 2011Q2

REPORT INFORMATION
  Report Type: 
  Country: None (occurrence: None)
  Receive Date: 20110601
  Receipt Date: 20110518
  Transmission Date: 20111010
  Serious: Yes (Other)
  Sender: FDA-Public Use
  Company Number: PHHY2011BR43504

PATIENT
  Sex: Male
  Weight: 73 kg

DRUGS (2)
  1. EXFORGE [Suspect]
     Dosage: 160 MG VALS AND 5 MG AMLO
  2. EXFORGE [Suspect]
     Indication: HYPERTENSION
     Dosage: 160 MG VALS AND 5 MG AMLO
     Dates: end: 20100601

REACTIONS (2)
  - FEMUR FRACTURE [None]
  - FALL [None]
